FAERS Safety Report 9716485 (Version 2)
Quarter: 2013Q4

REPORT INFORMATION
  Report Type: Spontaneous
  Country: US (occurrence: US)
  Receive Date: 20131127
  Receipt Date: 20131224
  Transmission Date: 20140711
  Serious: Yes (Other)
  Sender: FDA-Public Use
  Company Number: US-BRISTOL-MYERS SQUIBB COMPANY-19833086

PATIENT
  Sex: Female

DRUGS (2)
  1. ABILIFY [Suspect]
  2. DEPAKOTE [Suspect]

REACTIONS (3)
  - Mania [Unknown]
  - Depression [Unknown]
  - Injury [Unknown]
